FAERS Safety Report 5685161-9 (Version None)
Quarter: 2008Q1

REPORT INFORMATION
  Report Type: 
  Country: None (occurrence: None)
  Receive Date: 20080328
  Receipt Date: 20080320
  Transmission Date: 20080703
  Serious: Yes (Other)
  Sender: FDA-Public Use
  Company Number: US-PFIZER INC-2007023671

PATIENT
  Sex: Male
  Weight: 67 kg

DRUGS (3)
  1. DOSTINEX [Suspect]
     Indication: HYPERPROLACTINAEMIA
     Route: 048
  2. SYNTHROID [Concomitant]
     Route: 048
  3. MIRALAX [Concomitant]

REACTIONS (4)
  - BLOOD THYROID STIMULATING HORMONE DECREASED [None]
  - CONVULSION [None]
  - DELIRIUM [None]
  - HYPOTHYROIDISM [None]
